FAERS Safety Report 10171529 (Version 1)
Quarter: 2014Q2

REPORT INFORMATION
  Report Type: Spontaneous
  Country: US (occurrence: None)
  Receive Date: 20140428
  Receipt Date: 20140428
  Transmission Date: 20141212
  Serious: No
  Sender: FDA-Public Use
  Company Number: PHEH2013US025714

PATIENT
  Age: 57 Year
  Sex: Female
  Weight: 78.9 kg

DRUGS (2)
  1. GILENYA [Suspect]
     Indication: MULTIPLE SCLEROSIS
     Route: 048
     Dates: start: 20110801, end: 20130408
  2. ERGOTAMINE [Concomitant]

REACTIONS (4)
  - Epistaxis [None]
  - Muscle spasms [None]
  - Speech disorder [None]
  - Headache [None]
